FAERS Safety Report 9634525 (Version 1)
Quarter: 2013Q4

REPORT INFORMATION
  Report Type: Spontaneous
  Country: FR (occurrence: None)
  Receive Date: 20131017
  Receipt Date: 20131017
  Transmission Date: 20140711
  Serious: Yes (Other)
  Sender: FDA-Public Use
  Company Number: 2013-2272-SPO

PATIENT
  Age: 37 Year
  Sex: Female

DRUGS (2)
  1. OESTRPGEL [Suspect]
     Indication: HOT FLUSH
     Route: 003
     Dates: start: 2002
  2. ANDROCUR [Suspect]
     Indication: ENDOCRINE DISORDER
     Dosage: DAILY DOSE 2/DAY, 1 D, ORAL
     Route: 048
     Dates: start: 1989

REACTIONS (4)
  - Meningioma [None]
  - Nausea [None]
  - Headache [None]
  - Diplopia [None]
